FAERS Safety Report 18106914 (Version 1)
Quarter: 2020Q3

REPORT INFORMATION
  Report Type: Spontaneous
  Country: US (occurrence: US)
  Receive Date: 20200803
  Receipt Date: 20200803
  Transmission Date: 20201103
  Serious: Yes (Other)
  Sender: FDA-Public Use
  Company Number: US-PFIZER INC-2019422608

PATIENT
  Age: 67 Year
  Sex: Female
  Weight: 90.72 kg

DRUGS (2)
  1. LYRICA [Suspect]
     Active Substance: PREGABALIN
     Indication: RESTLESS LEGS SYNDROME
     Dosage: 50 MG, 3X/DAY
     Route: 048
  2. LYRICA [Suspect]
     Active Substance: PREGABALIN
     Indication: DEMYELINATING POLYNEUROPATHY
     Dosage: 25 MG, 1X/DAY (ONCE AT NIGHT)
     Route: 048

REACTIONS (6)
  - Inappropriate schedule of product administration [Unknown]
  - Cerebrovascular accident [Unknown]
  - Drug dependence [Unknown]
  - Insomnia [Unknown]
  - Drug ineffective [Unknown]
  - Product dose omission issue [Unknown]
